FAERS Safety Report 16057315 (Version 1)
Quarter: 2019Q1

REPORT INFORMATION
  Report Type: Spontaneous
  Country: US (occurrence: US)
  Receive Date: 20190311
  Receipt Date: 20190311
  Transmission Date: 20190418
  Serious: No
  Sender: FDA-Public Use
  Company Number: US-PFIZER INC-2015352304

PATIENT
  Age: 63 Year
  Sex: Male
  Weight: 90.72 kg

DRUGS (4)
  1. RAPAMUNE [Suspect]
     Active Substance: SIROLIMUS
     Indication: BONE MARROW TRANSPLANT
  2. RAPAMUNE [Suspect]
     Active Substance: SIROLIMUS
     Indication: NON-HODGKIN^S LYMPHOMA
     Dosage: 2 MG (1 MG/ML, 2 ML), DAILY
     Route: 048
     Dates: start: 20151015
  3. RAPAMUNE [Suspect]
     Active Substance: SIROLIMUS
     Indication: CHRONIC GRAFT VERSUS HOST DISEASE
  4. RAPAMUNE [Suspect]
     Active Substance: SIROLIMUS
     Indication: MANTLE CELL LYMPHOMA

REACTIONS (3)
  - Product use in unapproved indication [Unknown]
  - Malaise [Unknown]
  - Product dose omission [Recovered/Resolved]

NARRATIVE: CASE EVENT DATE: 20151015
